FAERS Safety Report 6011044-0 (Version None)
Quarter: 2008Q4

REPORT INFORMATION
  Report Type: 
  Country: None (occurrence: None)
  Receive Date: 20081218
  Receipt Date: 20081212
  Transmission Date: 20090506
  Serious: Yes (Death, Congenital Anomaly)
  Sender: FDA-Public Use
  Company Number: CH-PFIZER INC-2008087712

PATIENT

DRUGS (3)
  1. SALAZOPYRIN [Suspect]
     Indication: SPONDYLOARTHROPATHY
     Dosage: 500 MG, 4X/DAY
     Route: 050
     Dates: start: 20071201
  2. CELEBREX [Suspect]
     Indication: ARTHRITIS
     Dosage: 200 MG, 2X/DAY
     Route: 050
     Dates: start: 20070601
  3. CELEBREX [Suspect]
     Indication: SPONDYLOARTHROPATHY

REACTIONS (2)
  - PATERNAL DRUGS AFFECTING FOETUS [None]
  - TRISOMY 21 [None]
